FAERS Safety Report 21358801 (Version 3)
Quarter: 2022Q4

REPORT INFORMATION
  Report Type: Spontaneous
  Country: US (occurrence: US)
  Receive Date: 20220921
  Receipt Date: 20221028
  Transmission Date: 20230113
  Serious: No
  Sender: FDA-Public Use
  Company Number: US-PFIZER INC-202201107227

PATIENT
  Age: 74 Year
  Sex: Female
  Weight: 88.9 kg

DRUGS (1)
  1. GENOTROPIN [Suspect]
     Active Substance: SOMATROPIN
     Indication: Pituitary enlargement
     Dosage: UNK, 1X/DAY (0.033 ML/ .4 MG, ONCE A DAY)

REACTIONS (2)
  - Drug dose omission by device [Unknown]
  - Device information output issue [Unknown]
